FAERS Safety Report 6697716-3 (Version None)
Quarter: 2010Q2

REPORT INFORMATION
  Report Type: 
  Country: None (occurrence: None)
  Receive Date: 20100423
  Receipt Date: 20100416
  Transmission Date: 20101027
  Serious: Yes (Hospitalization)
  Sender: FDA-Public Use
  Company Number: CIP10000605

PATIENT
  Age: 63 Year
  Sex: Female
  Weight: 93 kg

DRUGS (20)
  1. ACTONEL [Suspect]
     Indication: OSTEOPOROSIS
     Dosage: 150 MG ONE DOSE ONLY, ORAL
     Route: 048
     Dates: start: 20090829, end: 20100205
  2. FOSAMAX [Suspect]
     Indication: OSTEOPOROSIS
     Dosage: 10 MG, DAILY, ORAL
     Route: 048
     Dates: start: 20020101, end: 20071224
  3. ALL OTHER THERAPEUTIC PRODUCTS [Suspect]
     Indication: OSTEOARTHRITIS
     Dosage: EVERY 8   WEEKS, IV NOS
     Route: 042
     Dates: start: 20091119
  4. PAXIL [Concomitant]
  5. SYNTHROID [Concomitant]
  6. ZIAC /01166101/ (BISOPROLOL FUMARATE, HYDROCHLOROTHIAZIDE) [Concomitant]
  7. METFORMIN HCL [Concomitant]
  8. AMITRIPTYLINE HYDROCHLORIDE [Concomitant]
  9. LORAZEPAM [Concomitant]
  10. ASPIRIN [Concomitant]
  11. CALCIUM (CALCIUM) [Concomitant]
  12. GINKGO BILOBA (GINKGO BILOBA) [Concomitant]
  13. OSTEO BI-FLEX (CHONDROITIN SULFATE, GLUCOSAMINE HYDROCHLORIDE) [Concomitant]
  14. ZYRTEC [Concomitant]
  15. BUPROPION HCL [Concomitant]
  16. MULTIVITAMIN /00097801/ (ASCORBIC ACID, CALCIUM PANTOTHENATE, ERGOCALC [Concomitant]
  17. VITAMIN C /00008001/ (ASCORBIC ACID) [Concomitant]
  18. POTASSIUM GLUCONATE TAB [Concomitant]
  19. CHONDROITIN (CHONDROITIN) [Concomitant]
  20. LINSEED OIL (LINUM USITATISSIMUM SEED OIL) [Concomitant]

REACTIONS (4)
  - BONE DISORDER [None]
  - FALL [None]
  - FEMUR FRACTURE [None]
  - PATHOLOGICAL FRACTURE [None]
